FAERS Safety Report 16050519 (Version 1)
Quarter: 2019Q1

REPORT INFORMATION
  Report Type: Other
  Country: GB (occurrence: GB)
  Receive Date: 20190308
  Receipt Date: 20190308
  Transmission Date: 20190418
  Serious: Yes (Other)
  Sender: FDA-Public Use
  Company Number: GB-APOTEX-2019AP008885

PATIENT
  Age: 97 Year
  Sex: Male

DRUGS (3)
  1. CLOPIDOGREL [Suspect]
     Active Substance: CLOPIDOGREL BISULFATE
     Indication: ACUTE CARDIAC EVENT
     Dosage: UNK
     Route: 065
  2. DALTEPARIN [Suspect]
     Active Substance: DALTEPARIN
     Indication: PRODUCT USED FOR UNKNOWN INDICATION
     Dosage: 5000 IU, UNK
     Route: 065
  3. ACETYLSALICYLIC ACID [Suspect]
     Active Substance: ASPIRIN
     Indication: ACUTE CARDIAC EVENT
     Route: 065

REACTIONS (2)
  - Haemoglobin decreased [Unknown]
  - Haematuria [Unknown]

NARRATIVE: CASE EVENT DATE: 20181001
